FAERS Safety Report 5077557-3 (Version None)
Quarter: 2006Q3

REPORT INFORMATION
  Report Type: 
  Country: None (occurrence: None)
  Receive Date: 20060810
  Receipt Date: 20060405
  Transmission Date: 20061208
  Serious: No
  Sender: FDA-Public Use
  Company Number: US-GLAXOSMITHKLINE-A0600557A

PATIENT
  Age: 57 Year
  Sex: Female

DRUGS (7)
  1. PAROXETINE HCL [Suspect]
     Dosage: 10MG PER DAY
     Route: 048
  2. PAXIL CR [Suspect]
     Dosage: 12.5MG PER DAY
     Route: 048
  3. CLARITIN PRN [Concomitant]
  4. FOSAMAX [Concomitant]
  5. OSCAL [Concomitant]
  6. CENTRUM SILVER [Concomitant]
  7. FLAX SEED OIL [Concomitant]

REACTIONS (5)
  - ANXIETY [None]
  - BLOOD PRESSURE INCREASED [None]
  - DISTURBANCE IN ATTENTION [None]
  - DYSPNOEA [None]
  - HEART RATE INCREASED [None]
